FAERS Safety Report 7494948-1 (Version None)
Quarter: 2011Q2

REPORT INFORMATION
  Report Type: 
  Country: None (occurrence: None)
  Receive Date: 20110520
  Receipt Date: 20110510
  Transmission Date: 20111010
  Serious: Yes (Hospitalization)
  Sender: FDA-Public Use
  Company Number: DE-UCBSA-032521

PATIENT
  Age: 55 Year
  Sex: Female

DRUGS (3)
  1. KEPPRA [Suspect]
  2. KEPPRA [Suspect]
  3. KEPPRA [Suspect]
     Dates: start: 20101101

REACTIONS (6)
  - NAUSEA [None]
  - LOSS OF CONSCIOUSNESS [None]
  - HYPOTENSION [None]
  - DIARRHOEA [None]
  - FATIGUE [None]
  - PERSONALITY CHANGE [None]
